FAERS Safety Report 15712051 (Version 1)
Quarter: 2018Q4

REPORT INFORMATION
  Report Type: Spontaneous
  Country: JP (occurrence: JP)
  Receive Date: 20181212
  Receipt Date: 20181212
  Transmission Date: 20190205
  Serious: Yes (Hospitalization, Other)
  Sender: FDA-Public Use
  Company Number: JP-TEVA-2018-JP-006584J

PATIENT
  Sex: Male

DRUGS (4)
  1. CERCINE [Suspect]
     Active Substance: DIAZEPAM
     Indication: PRODUCT USED FOR UNKNOWN INDICATION
     Route: 048
  2. SERENAL [Concomitant]
     Route: 065
  3. TOFRANIL [Concomitant]
     Active Substance: IMIPRAMINE HYDROCHLORIDE
     Route: 065
  4. SENIRAN [Concomitant]
     Active Substance: BROMAZEPAM
     Route: 065

REACTIONS (9)
  - Hallucination [Unknown]
  - Schizophrenia [Unknown]
  - Persistent depressive disorder [Unknown]
  - Withdrawal syndrome [Not Recovered/Not Resolved]
  - Facial spasm [Not Recovered/Not Resolved]
  - Neurosis [Unknown]
  - Depressive symptom [Unknown]
  - Asthenopia [Not Recovered/Not Resolved]
  - Insomnia [Not Recovered/Not Resolved]

NARRATIVE: CASE EVENT DATE: 2012
